FAERS Safety Report 25111281 (Version 4)
Quarter: 2025Q2

REPORT INFORMATION
  Report Type: Report from Study
  Country: BE (occurrence: BE)
  Receive Date: 20250324
  Receipt Date: 20250609
  Transmission Date: 20250716
  Serious: No
  Sender: KARYOPHARM THERAPEUTICS
  Company Number: BE-KARYOPHARM-2025KPT100029

PATIENT
  Age: 72 Year
  Sex: Female

DRUGS (6)
  1. SELINEXOR [Suspect]
     Active Substance: SELINEXOR
     Indication: Endometrial cancer
     Dates: start: 20221124
  2. SELINEXOR [Suspect]
     Active Substance: SELINEXOR
  3. SELINEXOR [Suspect]
     Active Substance: SELINEXOR
     Dates: start: 20211125
  4. SELINEXOR [Suspect]
     Active Substance: SELINEXOR
     Dates: start: 20211209
  5. SELINEXOR [Suspect]
     Active Substance: SELINEXOR
     Dates: start: 20220120
  6. SELINEXOR [Suspect]
     Active Substance: SELINEXOR
     Dates: start: 20220310

REACTIONS (9)
  - Regurgitation [Not Recovered/Not Resolved]
  - Tongue coated [Not Recovered/Not Resolved]
  - Abdominal discomfort [Not Recovered/Not Resolved]
  - Gilbert^s syndrome [Not Recovered/Not Resolved]
  - Muscle spasms [Not Recovered/Not Resolved]
  - Ear discomfort [Not Recovered/Not Resolved]
  - Dry skin [Not Recovered/Not Resolved]
  - Nausea [Not Recovered/Not Resolved]
  - Fatigue [Not Recovered/Not Resolved]

NARRATIVE: CASE EVENT DATE: 20210715
